FAERS Safety Report 12876399 (Version 1)
Quarter: 2016Q4

REPORT INFORMATION
  Report Type: Spontaneous
  Country: US (occurrence: US)
  Receive Date: 20161021
  Receipt Date: 20161021
  Transmission Date: 20170207
  Serious: Yes (Hospitalization)
  Sender: FDA-Public Use
  Company Number: None

PATIENT
  Age: 83 Year
  Sex: Female
  Weight: 63 kg

DRUGS (9)
  1. KRILL OIL [Concomitant]
     Active Substance: DIETARY SUPPLEMENT
  2. PANTOPRAZOLE [Concomitant]
     Active Substance: PANTOPRAZOLE SODIUM
  3. TRAMADOL. [Concomitant]
     Active Substance: TRAMADOL
  4. CALCIUM [Concomitant]
     Active Substance: CALCIUM
  5. MULTI VITAMINS [Concomitant]
     Active Substance: VITAMINS
  6. XELJANZ [Suspect]
     Active Substance: TOFACITINIB CITRATE
     Indication: RHEUMATOID ARTHRITIS
     Route: 048
     Dates: start: 20160512, end: 20160915
  7. LOSARTAN. [Concomitant]
     Active Substance: LOSARTAN
  8. AMLODIPINE [Concomitant]
     Active Substance: AMLODIPINE BESYLATE
  9. FOLIC ACID. [Concomitant]
     Active Substance: FOLIC ACID

REACTIONS (3)
  - Immunodeficiency [None]
  - Eye infection viral [None]
  - Cytomegalovirus infection [None]

NARRATIVE: CASE EVENT DATE: 20160917
